FAERS Safety Report 6832951-2 (Version None)
Quarter: 2010Q3

REPORT INFORMATION
  Report Type: 
  Country: None (occurrence: None)
  Receive Date: 20100712
  Receipt Date: 20070319
  Transmission Date: 20110219
  Serious: No
  Sender: FDA-Public Use
  Company Number: US-PFIZER INC-2007022081

PATIENT
  Sex: Female

DRUGS (16)
  1. CHANTIX [Suspect]
     Indication: SMOKING CESSATION THERAPY
     Route: 048
     Dates: start: 20070219
  2. NEURONTIN [Concomitant]
  3. VERAPAMIL [Concomitant]
  4. METHIMAZOLE [Concomitant]
  5. CLONIDINE [Concomitant]
  6. FLONASE [Concomitant]
  7. FISH OIL [Concomitant]
  8. VITAMIN C [Concomitant]
  9. ACETYLSALICYLIC ACID [Concomitant]
  10. CALCIUM [Concomitant]
  11. CLARITIN [Concomitant]
  12. FOLIC ACID [Concomitant]
  13. SUPER VITAMIN B COMPLEX [Concomitant]
  14. CHROMIUM PICOLINATE [Concomitant]
  15. FIBRE, DIETARY [Concomitant]
     Indication: CONSTIPATION
     Dates: end: 20070301
  16. GLUCOSAMINE W/CHONDROITIN SULFATES [Concomitant]

REACTIONS (3)
  - FLATULENCE [None]
  - FREQUENT BOWEL MOVEMENTS [None]
  - NAUSEA [None]
